FAERS Safety Report 7679836-X (Version None)
Quarter: 2011Q3

REPORT INFORMATION
  Report Type: 
  Country: None (occurrence: None)
  Receive Date: 20110812
  Receipt Date: 20110802
  Transmission Date: 20111222
  Serious: Yes (Other)
  Sender: FDA-Public Use
  Company Number: CZ-JNJFOC-20110801632

PATIENT
  Sex: Female
  Weight: 63 kg

DRUGS (7)
  1. AZATHIOPRIN [Concomitant]
     Indication: COLITIS ULCERATIVE
     Route: 065
  2. PYRIDOXIN [Concomitant]
     Indication: COLITIS ULCERATIVE
     Route: 065
     Dates: start: 20110401
  3. FRAXIPARINE [Concomitant]
     Indication: PULMONARY EMBOLISM
     Route: 065
     Dates: start: 20110401
  4. HYDROCORTISONE [Concomitant]
     Indication: PREMEDICATION
     Route: 042
     Dates: start: 20110727
  5. ACIDUM FOLICUM [Concomitant]
     Indication: COLITIS ULCERATIVE
     Route: 065
     Dates: start: 20110401
  6. MESALAMINE [Concomitant]
     Indication: COLITIS ULCERATIVE
     Route: 065
     Dates: start: 20080801
  7. REMICADE [Suspect]
     Indication: COLITIS ULCERATIVE
     Route: 042
     Dates: start: 20110427, end: 20110727

REACTIONS (6)
  - TACHYCARDIA [None]
  - DYSPNOEA [None]
  - RASH [None]
  - HYPOTENSION [None]
  - COUGH [None]
  - INFUSION RELATED REACTION [None]
